FAERS Safety Report 24067757 (Version 1)
Quarter: 2024Q3

REPORT INFORMATION
  Report Type: Other
  Country: US (occurrence: US)
  Receive Date: 20240710
  Receipt Date: 20240710
  Transmission Date: 20241017
  Serious: Yes (Life-Threatening)
  Sender: B BRAUN
  Company Number: US-B.Braun Medical Inc.-2158981

PATIENT
  Age: 42 Year
  Sex: Female

DRUGS (2)
  1. DEXTROSE\LIDOCAINE HYDROCHLORIDE [Suspect]
     Active Substance: DEXTROSE\LIDOCAINE HYDROCHLORIDE
     Indication: Ventricular tachycardia
  2. AMIODARONE [Suspect]
     Active Substance: AMIODARONE

REACTIONS (1)
  - Drug ineffective [Unknown]
